FAERS Safety Report 9972018 (Version 2)
Quarter: 2014Q1

REPORT INFORMATION
  Report Type: Report from Study
  Country: US (occurrence: US)
  Receive Date: 20140306
  Receipt Date: 20140306
  Transmission Date: 20141002
  Serious: Yes (Hospitalization)
  Sender: FDA-Public Use
  Company Number: US-ABBVIE-13P-163-1148380-00

PATIENT
  Age: 34 Year
  Sex: Female
  Weight: 57.66 kg

DRUGS (1)
  1. HUMIRA [Suspect]
     Indication: CROHN^S DISEASE
     Route: 058
     Dates: start: 20130208

REACTIONS (3)
  - Pneumonia [Unknown]
  - Sepsis [Unknown]
  - Device related infection [Unknown]
